FAERS Safety Report 6213475-2 (Version None)
Quarter: 2009Q2

REPORT INFORMATION
  Report Type: 
  Country: None (occurrence: None)
  Receive Date: 20090603
  Receipt Date: 20090521
  Transmission Date: 20091009
  Serious: Yes (Other)
  Sender: FDA-Public Use
  Company Number: US-PFIZER INC-2009155506

PATIENT
  Sex: Male
  Weight: 102.4 kg

DRUGS (4)
  1. CHANTIX [Suspect]
     Indication: SMOKING CESSATION THERAPY
     Dosage: 1 MG, 2X/DAY
     Dates: start: 20081015, end: 20081218
  2. ZOCOR [Concomitant]
     Dosage: UNK
  3. BENADRYL [Concomitant]
     Dosage: UNK
  4. TESTOSTERONE [Concomitant]
     Dosage: UNK

REACTIONS (5)
  - DELUSION [None]
  - DEPRESSION [None]
  - MENTAL DISORDER [None]
  - PHYSICAL ASSAULT [None]
  - PSYCHOTIC DISORDER [None]
